FAERS Safety Report 8747384 (Version 1)
Quarter: 2012Q4

REPORT INFORMATION
  Report Type: 
  Country: CA (occurrence: CA)
  Receive Date: 20120828
  Receipt Date: 20120828
  Transmission Date: 20130627
  Serious: Yes (Hospitalization)
  Sender: FDA-Public Use
  Company Number: CA-VERTEX PHARMACEUTICAL INC.-2012-020133

PATIENT
  Age: 59 Year
  Sex: Female
  Weight: 44 kg

DRUGS (7)
  1. INCIVEK [Suspect]
     Indication: HEPATITIS C
     Dosage: 750 mg, tid
     Route: 048
  2. PEGINTRON                          /01543001/ [Concomitant]
     Indication: HEPATITIS C
     Dosage: 120 UNK, UNK
     Route: 058
  3. ATENOLOL [Concomitant]
  4. EPREX [Concomitant]
     Route: 042
  5. LASIX                              /00032601/ [Concomitant]
  6. NADOLOL [Concomitant]
  7. SPIRONOLACTONE [Concomitant]

REACTIONS (2)
  - Oesophageal varices haemorrhage [Not Recovered/Not Resolved]
  - Ascites [Not Recovered/Not Resolved]
